FAERS Safety Report 6975488-2 (Version None)
Quarter: 2010Q3

REPORT INFORMATION
  Report Type: 
  Country: None (occurrence: None)
  Receive Date: 20100910
  Receipt Date: 20100902
  Transmission Date: 20110219
  Serious: Yes (Other)
  Sender: FDA-Public Use
  Company Number: US-BIOGENIDEC-2010BI018266

PATIENT
  Age: 56 Year
  Sex: Female
  Weight: 84 kg

DRUGS (25)
  1. TYSABRI [Suspect]
     Indication: MULTIPLE SCLEROSIS
     Route: 042
     Dates: start: 20071031
  2. ASCORBIC ACID [Concomitant]
  3. BACLOFEN [Concomitant]
  4. CALCIUM [Concomitant]
  5. GLUCOSAMINE [Concomitant]
  6. PEPTO BISMOL [Concomitant]
  7. CHONDROITIN SULFATE [Concomitant]
  8. ARICEPT [Concomitant]
  9. PEPCID [Concomitant]
  10. GABAPENTIN [Concomitant]
  11. GEMFIBROZIL [Concomitant]
  12. GLYBURIDE [Concomitant]
  13. HYDROCHLOROTHIAZIDE [Concomitant]
  14. PROVIGIL [Concomitant]
  15. MULTI-VITAMIN [Concomitant]
  16. NIACIN [Concomitant]
  17. NORTRIPTYLINE HCL [Concomitant]
  18. FISH OIL [Concomitant]
  19. OMEPRAZOLE [Concomitant]
  20. OXYBUTYNIN [Concomitant]
  21. POTASSIUM [Concomitant]
  22. PRAZOSIN HCL [Concomitant]
  23. ROPINIROLE [Concomitant]
  24. SIMETHICONE [Concomitant]
  25. VENTOLIN [Concomitant]

REACTIONS (1)
  - MALIGNANT MELANOMA [None]
